FAERS Safety Report 25096422 (Version 1)
Quarter: 2025Q1

REPORT INFORMATION
  Report Type: Spontaneous
  Country: US (occurrence: US)
  Receive Date: 20250319
  Receipt Date: 20250319
  Transmission Date: 20250409
  Serious: No
  Sender: PFIZER
  Company Number: US-PFIZER INC-PV202500032580

PATIENT
  Age: 58 Year
  Sex: Female

DRUGS (3)
  1. OXBRYTA [Suspect]
     Active Substance: VOXELOTOR
     Dosage: 3 DF, DAILY
  2. FOLIC ACID [Concomitant]
     Active Substance: FOLIC ACID
  3. HYDROXYUREA [Concomitant]
     Active Substance: HYDROXYUREA

REACTIONS (1)
  - Hypersensitivity [Recovered/Resolved]
